FAERS Safety Report 8761341 (Version 3)
Quarter: 2012Q4

REPORT INFORMATION
  Report Type: 
  Country: US (occurrence: US)
  Receive Date: 20120830
  Receipt Date: 20121108
  Transmission Date: 20130627
  Serious: Yes (Hospitalization, Disabling, Other)
  Sender: FDA-Public Use
  Company Number: US-009507513-1202USA02458

PATIENT

DRUGS (2)
  1. FOSAMAX [Suspect]
     Indication: OSTEOPOROSIS
     Dosage: 10 mg, qd
     Route: 048
  2. FOSAMAX [Suspect]
     Indication: OSTEOPENIA
     Dosage: 70 mg, QW
     Route: 048

REACTIONS (20)
  - Femur fracture [Not Recovered/Not Resolved]
  - Low turnover osteopathy [Not Recovered/Not Resolved]
  - Femur fracture [Not Recovered/Not Resolved]
  - Scapula fracture [Unknown]
  - Hypothyroidism [Unknown]
  - Musculoskeletal disorder [Unknown]
  - Tooth disorder [Unknown]
  - Tooth disorder [Unknown]
  - Tooth disorder [Unknown]
  - Tooth disorder [Unknown]
  - Pubis fracture [Unknown]
  - Bone cyst [Unknown]
  - Psoriasis [Unknown]
  - Osteoarthritis [Unknown]
  - Vascular calcification [Unknown]
  - Phlebolith [Unknown]
  - Fall [Unknown]
  - Pubis fracture [Unknown]
  - Limb asymmetry [Unknown]
  - Pelvic fracture [Unknown]
